FAERS Safety Report 8961397 (Version 1)
Quarter: 2012Q4

REPORT INFORMATION
  Report Type: 
  Country: US (occurrence: US)
  Receive Date: 20121213
  Receipt Date: 20121213
  Transmission Date: 20130627
  Serious: Yes (Other)
  Sender: FDA-Public Use
  Company Number: US-JNJFOC-20121203186

PATIENT
  Sex: Male

DRUGS (1)
  1. INVEGA SUSTENNA [Suspect]
     Indication: PRODUCT USED FOR UNKNOWN INDICATION
     Route: 030

REACTIONS (4)
  - Parkinsonism [Not Recovered/Not Resolved]
  - Flat affect [Not Recovered/Not Resolved]
  - Drooling [Not Recovered/Not Resolved]
  - Drug dose omission [Not Recovered/Not Resolved]
